FAERS Safety Report 5194429-4 (Version None)
Quarter: 2006Q4

REPORT INFORMATION
  Report Type: 
  Country: None (occurrence: None)
  Receive Date: 20061221
  Receipt Date: 20061214
  Transmission Date: 20070319
  Serious: Yes (Other)
  Sender: FDA-Public Use
  Company Number: HQWYE216115DEC06

PATIENT
  Age: 51 Year
  Sex: Female
  Weight: 90.8 kg

DRUGS (8)
  1. ADVIL [Suspect]
     Indication: NECK PAIN
     Dosage: 3 TABLETS AT ONCE, ORAL
     Route: 048
     Dates: start: 20061130, end: 20061130
  2. ADVIL [Suspect]
     Indication: PHARYNGOLARYNGEAL PAIN
     Dosage: 3 TABLETS AT ONCE, ORAL
     Route: 048
     Dates: start: 20061130, end: 20061130
  3. ADVIL [Suspect]
     Indication: NECK PAIN
     Dosage: 3 TABLETS AT ONCE, ORAL
     Route: 048
     Dates: start: 20061213, end: 20061213
  4. ADVIL [Suspect]
     Indication: PHARYNGOLARYNGEAL PAIN
     Dosage: 3 TABLETS AT ONCE, ORAL
     Route: 048
     Dates: start: 20061213, end: 20061213
  5. ADVICOR [Suspect]
     Indication: DRUG USE FOR UNKNOWN INDICATION
  6. ASPIRIN [Suspect]
     Indication: DRUG USE FOR UNKNOWN INDICATION
  7. GLYBURIDE [Concomitant]
  8. METFORMIN [Concomitant]

REACTIONS (9)
  - ANAPHYLACTIC SHOCK [None]
  - DRUG ADMINISTRATION ERROR [None]
  - ERYTHEMA [None]
  - FLUSHING [None]
  - HYPOAESTHESIA ORAL [None]
  - OCULAR HYPERAEMIA [None]
  - OEDEMA PERIPHERAL [None]
  - PRURITUS [None]
  - URTICARIA [None]
